FAERS Safety Report 15028219 (Version 1)
Quarter: 2018Q2

REPORT INFORMATION
  Report Type: Spontaneous
  Country: US (occurrence: US)
  Receive Date: 20180526
  Receipt Date: 20180526
  Transmission Date: 20180711
  Serious: No
  Sender: FDA-Public Use
  Company Number: None

PATIENT
  Age: 62 Year
  Sex: Male

DRUGS (2)
  1. ENTECAVIR TAB 0.5MG [Suspect]
     Active Substance: ENTECAVIR
     Route: 048
     Dates: start: 20180520, end: 20180525
  2. CLOPIDOGREL [Concomitant]
     Active Substance: CLOPIDOGREL BISULFATE

REACTIONS (3)
  - Rash [None]
  - Blood bilirubin increased [None]
  - Pruritus [None]

NARRATIVE: CASE EVENT DATE: 20180525
